FAERS Safety Report 18199596 (Version 1)
Quarter: 2020Q3

REPORT INFORMATION
  Report Type: Spontaneous
  Country: US (occurrence: US)
  Receive Date: 20200826
  Receipt Date: 20200826
  Transmission Date: 20201103
  Serious: Yes (Death, Other)
  Sender: FDA-Public Use
  Company Number: US-GILEAD-2020-0492046

PATIENT
  Age: 91 Year
  Sex: Female
  Weight: 45 kg

DRUGS (11)
  1. REMDESIVIR. [Suspect]
     Active Substance: REMDESIVIR
     Indication: COVID-19
     Dosage: 100 MG, QD
     Route: 042
     Dates: start: 20200814, end: 20200818
  2. BISACODYL. [Concomitant]
     Active Substance: BISACODYL
  3. ATENOLOL. [Concomitant]
     Active Substance: ATENOLOL
  4. ENOXAPARIN [Concomitant]
     Active Substance: ENOXAPARIN
  5. PANTOPRAZOLE [Concomitant]
     Active Substance: PANTOPRAZOLE
  6. LORAZEPAM. [Concomitant]
     Active Substance: LORAZEPAM
  7. MORPHINE [Concomitant]
     Active Substance: MORPHINE
  8. ATORVASTATIN [Concomitant]
     Active Substance: ATORVASTATIN
  9. DEXAMETHASONE PHOSPHATE [DEXAMETHASONE SODIUM PHOSPHATE] [Concomitant]
  10. HYDROMORPHONE [Concomitant]
     Active Substance: HYDROMORPHONE
  11. AMLODIPINE [Concomitant]
     Active Substance: AMLODIPINE BESYLATE

REACTIONS (2)
  - Tachypnoea [Unknown]
  - Death [Fatal]

NARRATIVE: CASE EVENT DATE: 20200819
